FAERS Safety Report 8489888-5 (Version None)
Quarter: 2012Q3

REPORT INFORMATION
  Report Type: 
  Country: None (occurrence: None)
  Receive Date: 20120705
  Receipt Date: 20120629
  Transmission Date: 20120928
  Serious: Yes (Hospitalization, Other)
  Sender: FDA-Public Use
  Company Number: PHHY2012DE054709

PATIENT
  Sex: Male
  Weight: 105 kg

DRUGS (3)
  1. ACETAMINOPHEN [Suspect]
     Dosage: 10 DF, ONCE/SINGLE
     Route: 048
     Dates: start: 20120624, end: 20120624
  2. ALCOHOL [Suspect]
     Route: 048
     Dates: start: 20120624
  3. CLARITHROMYCIN [Suspect]
     Dosage: 12 DF, ONCE/SINGLE
     Route: 048
     Dates: start: 20120624, end: 20120624

REACTIONS (5)
  - BLOOD CREATINE PHOSPHOKINASE INCREASED [None]
  - ALCOHOL POISONING [None]
  - AGGRESSION [None]
  - TACHYCARDIA [None]
  - INTENTIONAL OVERDOSE [None]
